FAERS Safety Report 4299927-3 (Version None)
Quarter: 2004Q1

REPORT INFORMATION
  Report Type: 
  Country: None (occurrence: None)
  Receive Date: 20040220
  Receipt Date: 20040130
  Transmission Date: 20041129
  Serious: Yes (Death)
  Sender: FDA-Public Use
  Company Number: 200410773US

PATIENT
  Sex: Male
  Weight: 59 kg

DRUGS (2)
  1. AMARYL [Suspect]
     Indication: BLOOD GLUCOSE INCREASED
     Route: 048
  2. PRECOSE [Concomitant]
     Dosage: DOSE: NOT PROVIDED

REACTIONS (1)
  - HYPOGLYCAEMIC ENCEPHALOPATHY [None]
